FAERS Safety Report 16710024 (Version 1)
Quarter: 2019Q3

REPORT INFORMATION
  Report Type: Spontaneous
  Country: DE (occurrence: DE)
  Receive Date: 20190816
  Receipt Date: 20190816
  Transmission Date: 20191004
  Serious: Yes (Other)
  Sender: FDA-Public Use
  Company Number: DE-LUPIN PHARMACEUTICALS INC.-2019-05169

PATIENT
  Age: 66 Year
  Sex: Female

DRUGS (2)
  1. IMATINIB MESYLATE. [Suspect]
     Active Substance: IMATINIB MESYLATE
     Indication: GASTROINTESTINAL CANCER METASTATIC
     Dosage: 400 MILLIGRAM, QD
     Route: 065
  2. IMATINIB MESYLATE. [Suspect]
     Active Substance: IMATINIB MESYLATE
     Dosage: 200 MILLIGRAM, QD
     Route: 065

REACTIONS (2)
  - Lichen sclerosus [Unknown]
  - Blister [Recovering/Resolving]
